FAERS Safety Report 9293852 (Version 1)
Quarter: 2013Q2

REPORT INFORMATION
  Report Type: Report from Study
  Country: DE (occurrence: DE)
  Receive Date: 20130516
  Receipt Date: 20130516
  Transmission Date: 20140414
  Serious: Yes (Hospitalization)
  Sender: FDA-Public Use
  Company Number: DE-TEVA-391276GER

PATIENT
  Age: 64 Year
  Sex: Female

DRUGS (4)
  1. COPAXONE [Suspect]
     Indication: MULTIPLE SCLEROSIS
     Dosage: 20 MILLIGRAM DAILY;
     Route: 058
     Dates: start: 20120522
  2. ZOLPIDEM [Concomitant]
     Indication: INSOMNIA
     Dosage: 5-10 MG DAILY
     Route: 048
  3. CYMBALTA [Concomitant]
     Indication: INSOMNIA
     Dosage: 5-10 MG DAILY
     Route: 048
  4. FAMPYRA [Concomitant]
     Indication: MULTIPLE SCLEROSIS
     Dosage: 20  DAILY;
     Route: 048
     Dates: start: 20120427

REACTIONS (2)
  - Forearm fracture [Recovered/Resolved]
  - Fall [Recovered/Resolved]
